FAERS Safety Report 4360139-6 (Version None)
Quarter: 2004Q2

REPORT INFORMATION
  Report Type: 
  Country: None (occurrence: None)
  Receive Date: 20040519
  Receipt Date: 20030221
  Transmission Date: 20050107
  Serious: Yes (Hospitalization)
  Sender: FDA-Public Use
  Company Number: 200310958FR

PATIENT
  Age: 74 Year
  Sex: Female
  Weight: 70 kg

DRUGS (6)
  1. ARAVA [Suspect]
     Indication: RHEUMATOID ARTHRITIS
     Route: 048
     Dates: start: 20011115, end: 20020522
  2. SPECIAFOLDINE [Concomitant]
     Route: 048
  3. DIAMICRON [Concomitant]
     Indication: DIABETES MELLITUS
     Route: 048
  4. METHOTREXATE [Concomitant]
  5. HYZAAR [Concomitant]
     Route: 048
  6. NEURONTIN [Concomitant]
     Route: 048

REACTIONS (3)
  - HYPOREFLEXIA [None]
  - NEUROPATHY PERIPHERAL [None]
  - POLYNEUROPATHY [None]
